FAERS Safety Report 16118895 (Version 8)
Quarter: 2022Q2

REPORT INFORMATION
  Report Type: Spontaneous
  Country: JP (occurrence: None)
  Receive Date: 20190326
  Receipt Date: 20220609
  Transmission Date: 20220721
  Serious: Yes (Life-Threatening, Hospitalization, Other)
  Sender: FDA-Public Use
  Company Number: 2019SE44451

PATIENT
  Age: 69 Year
  Sex: Female
  Weight: 50 kg

DRUGS (7)
  1. IRESSA [Suspect]
     Active Substance: GEFITINIB
     Indication: Lung adenocarcinoma
     Route: 048
     Dates: start: 20180630, end: 20181124
  2. IRESSA [Suspect]
     Active Substance: GEFITINIB
     Indication: Lung adenocarcinoma
     Route: 048
     Dates: start: 20181125, end: 20190307
  3. IRESSA [Suspect]
     Active Substance: GEFITINIB
     Indication: Lung adenocarcinoma
     Dosage: 1500.0MG UNKNOWN
     Route: 048
     Dates: start: 20190315, end: 20190317
  4. CERCINE [Suspect]
     Active Substance: DIAZEPAM
     Indication: Anxiety
     Dosage: 2.0MG UNKNOWN
     Route: 048
     Dates: start: 20190313, end: 20190317
  5. CERCINE [Suspect]
     Active Substance: DIAZEPAM
     Indication: Anxiety
     Dosage: 8.0MG UNKNOWN
     Route: 048
     Dates: start: 20190315, end: 20190315
  6. AMLODIPINE [Concomitant]
     Active Substance: AMLODIPINE BESYLATE
     Indication: Hypertension
     Route: 048
  7. ZOLPIDEM TARTRATE [Concomitant]
     Active Substance: ZOLPIDEM TARTRATE
     Indication: Insomnia
     Route: 048

REACTIONS (11)
  - Overdose [Unknown]
  - Toxicity to various agents [Unknown]
  - Suicide attempt [Unknown]
  - Rhabdomyolysis [Recovering/Resolving]
  - Depressed mood [Unknown]
  - Amylase increased [Recovered/Resolved]
  - Abdominal discomfort [Unknown]
  - Anxiety [Unknown]
  - Rash [Unknown]
  - Hepatic function abnormal [Recovering/Resolving]
  - Off label use [Unknown]

NARRATIVE: CASE EVENT DATE: 20180704
